FAERS Safety Report 24836303 (Version 3)
Quarter: 2025Q4

REPORT INFORMATION
  Report Type: Report from Study
  Country: US (occurrence: US)
  Receive Date: 20250113
  Receipt Date: 20251216
  Transmission Date: 20260117
  Serious: Yes (Other)
  Sender: MERCK SHARP & DOHME LLC
  Company Number: US-009507513-2501USA002021

PATIENT
  Sex: Female
  Weight: 55.792 kg

DRUGS (24)
  1. WINREVAIR [Suspect]
     Active Substance: SOTATERCEPT-CSRK
     Indication: Pulmonary arterial hypertension
     Dosage: 0.8ML/ EVERY 3 WEEKS
     Route: 058
     Dates: start: 20241212
  2. WINREVAIR [Suspect]
     Active Substance: SOTATERCEPT-CSRK
  3. WINREVAIR [Suspect]
     Active Substance: SOTATERCEPT-CSRK
  4. REMODULIN [Suspect]
     Active Substance: TREPROSTINIL
     Indication: Pulmonary arterial hypertension
     Dosage: CURRENT DOSE WAS REPORTED AS 0.121 ?G/KG, CONTINUOUS; INJECTION, 5.0 MG/ML
     Route: 041
     Dates: start: 20240306
  5. REMODULIN [Suspect]
     Active Substance: TREPROSTINIL
     Indication: Pulmonary arterial hypertension
     Dosage: 0.113  G/KG, CONTINUING, IV DRIP
     Route: 041
  6. REMODULIN [Suspect]
     Active Substance: TREPROSTINIL
     Indication: Pulmonary arterial hypertension
     Dosage: 0.1  G/KG, CONTINUING, IV DRIP
     Route: 041
  7. TADALAFIL [Suspect]
     Active Substance: TADALAFIL
  8. FISH OIL [Concomitant]
     Active Substance: FISH OIL
  9. ROSUVASTATIN CALCIUM [Concomitant]
     Active Substance: ROSUVASTATIN CALCIUM
  10. ALBUTEROL SULFATE [Concomitant]
     Active Substance: ALBUTEROL SULFATE
  11. SODIUM CHLORIDE [Concomitant]
     Active Substance: SODIUM CHLORIDE
  12. FLUTICASONE PROPIONATE [Concomitant]
     Active Substance: FLUTICASONE PROPIONATE
  13. ELIQUIS [Concomitant]
     Active Substance: APIXABAN
  14. FAMOTIDINE [Concomitant]
     Active Substance: FAMOTIDINE
  15. LISINOPRIL [Concomitant]
     Active Substance: LISINOPRIL
  16. CALCIUM CITRATE\VITAMIN D [Concomitant]
     Active Substance: CALCIUM CITRATE\VITAMIN D
  17. LATANOPROST [Concomitant]
     Active Substance: LATANOPROST
  18. SPIRONOLACTONE [Concomitant]
     Active Substance: SPIRONOLACTONE
  19. OXYGEN [Concomitant]
     Active Substance: OXYGEN
  20. TORSEMIDE [Concomitant]
     Active Substance: TORSEMIDE
  21. TYLENOL [Concomitant]
     Active Substance: ACETAMINOPHEN
  22. LOPERAMIDE [Concomitant]
     Active Substance: LOPERAMIDE
  23. Midodrine HCL (Midodrine hydrochloride) [Concomitant]
  24. ANORO ELLIPTA [Concomitant]
     Active Substance: UMECLIDINIUM BROMIDE\VILANTEROL TRIFENATATE

REACTIONS (7)
  - Ophthalmic herpes zoster [Unknown]
  - Psoriasis [Unknown]
  - Palmar erythema [Unknown]
  - Product physical issue [Unknown]
  - Headache [Unknown]
  - Nausea [Unknown]
  - Product packaging quantity issue [Unknown]

NARRATIVE: CASE EVENT DATE: 20240101
